FAERS Safety Report 5065736-0 (Version None)
Quarter: 2006Q3

REPORT INFORMATION
  Report Type: 
  Country: None (occurrence: None)
  Receive Date: 20060731
  Receipt Date: 20050208
  Transmission Date: 20061208
  Serious: Yes (Hospitalization, Disabling)
  Sender: FDA-Public Use
  Company Number: US-ROCHE-394881

PATIENT
  Age: 44 Year
  Sex: Female
  Weight: 56.7 kg

DRUGS (42)
  1. ACCUTANE [Suspect]
     Indication: ACNE
     Route: 048
     Dates: start: 20040204, end: 20040313
  2. AMNESTEEM [Suspect]
     Indication: ACNE
     Route: 065
     Dates: start: 20040315
  3. LEVOXYL [Concomitant]
  4. ZOMIG [Concomitant]
  5. TOPAMAX [Concomitant]
  6. BROMPHEN [Concomitant]
     Dosage: REPORTED AS BROMPHEN PD.
  7. ZYRTEC [Concomitant]
  8. PONSTEL [Concomitant]
  9. DOXYCYCLINE HCL [Concomitant]
  10. VERAPAMIL [Concomitant]
     Dates: start: 20041203
  11. SYNTHROID [Concomitant]
     Indication: HYPOTHYROIDISM
     Dates: start: 20041015
  12. NEXIUM [Concomitant]
     Dates: start: 20041115
  13. 1 CONCOMITANT DRUG [Concomitant]
     Dosage: DRUG REPORTED AS PROPOXY.
     Dates: start: 20041015
  14. SYMAX [Concomitant]
     Indication: IRRITABLE BOWEL SYNDROME
     Dates: start: 20050515
  15. FLEXERIL [Concomitant]
     Dates: start: 20050615
  16. RHINOCORT [Concomitant]
     Indication: SINUSITIS
     Dates: start: 20050615
  17. MUCINEX [Concomitant]
     Indication: SINUSITIS
     Dates: start: 20050615
  18. DIFLUCAN [Concomitant]
     Dates: start: 19850615, end: 20040615
  19. LEVAQUIN [Concomitant]
     Dates: start: 20030615, end: 20050615
  20. TEQUIN [Concomitant]
     Dosage: AS NEEDED 2004 AND 2005.
  21. CLINDAMYCIN [Concomitant]
     Dosage: FOR TWO WEEKS.
     Dates: start: 20050115
  22. CIPRO [Concomitant]
     Dosage: FOR TWO WEEKS. REPORTED AS CIPRO XR.
     Dates: start: 20050115
  23. VICODIN [Concomitant]
     Indication: PAIN
     Dosage: FOR THREE WEEKS.
     Dates: start: 20050115
  24. CULTURELLE [Concomitant]
     Dates: start: 20041215, end: 20050115
  25. PROBIOTIC [Concomitant]
     Dates: start: 20041215, end: 20050115
  26. BROMFENAC [Concomitant]
     Indication: SINUSITIS
     Dates: start: 20040115, end: 20041015
  27. TAGAMET [Concomitant]
     Dosage: REPORTED AS TAGAMENT HB. FOR ONE DAY.
     Dates: start: 20040615
  28. BEXTRA [Concomitant]
     Dates: start: 20030915
  29. ENDOCET [Concomitant]
     Dosage: IN NOVEMBER 2001 AND JANUARY 2005.
  30. RANITIDINE [Concomitant]
     Indication: SINUSITIS
     Dates: start: 20041015
  31. 1 CONCOMITANT DRUG [Concomitant]
     Indication: HYPOTHYROIDISM
     Dates: start: 19910615, end: 20041015
  32. ELIDEL [Concomitant]
     Indication: ECZEMA
     Dates: start: 20040615
  33. DIFFERIN [Concomitant]
     Indication: ACNE
     Dates: start: 20040215
  34. PROTONIX [Concomitant]
     Dates: start: 20031115, end: 20040215
  35. 1 CONCOMITANT DRUG [Concomitant]
     Indication: ECZEMA
     Dosage: REPORTED AS TRIACINOLONE ACETONIDE.
     Dates: start: 20040215
  36. JOINTFLEX [Concomitant]
     Route: 061
     Dates: start: 20031215
  37. LIQUIBID [Concomitant]
     Indication: LARYNGITIS
     Dates: start: 20041115, end: 20041115
  38. ACIPHEX [Concomitant]
     Dates: start: 20041115
  39. ADVAIR DISKUS 100/50 [Concomitant]
     Indication: LARYNGITIS
     Dates: start: 20041015, end: 20041115
  40. PAMINE [Concomitant]
     Indication: IRRITABLE BOWEL SYNDROME
     Dates: start: 20040915, end: 20040915
  41. ALEVE (CAPLET) [Concomitant]
     Indication: HEADACHE
     Dosage: AS NEEDED.
  42. ST. JOHN'S WORT [Concomitant]
     Dosage: FOR PAST YEAR.

REACTIONS (34)
  - AMENORRHOEA [None]
  - ANOREXIA [None]
  - ANTINUCLEAR ANTIBODY POSITIVE [None]
  - AUTOIMMUNE HEPATITIS [None]
  - CARDIOVASCULAR DISORDER [None]
  - CHAPPED LIPS [None]
  - DYSPHAGIA [None]
  - EXERCISE LACK OF [None]
  - FATIGUE [None]
  - FIBROMYALGIA [None]
  - GASTRITIS [None]
  - GASTROINTESTINAL DISORDER [None]
  - GASTROOESOPHAGEAL REFLUX DISEASE [None]
  - GRANULOMATOUS LIVER DISEASE [None]
  - HEPATIC FUNCTION ABNORMAL [None]
  - HEPATOCELLULAR DAMAGE [None]
  - HISTOPLASMOSIS [None]
  - IMMUNE SYSTEM DISORDER [None]
  - INFLAMMATORY BOWEL DISEASE [None]
  - LARYNGITIS [None]
  - LEUKOPENIA [None]
  - LYMPHADENOPATHY [None]
  - MENOPAUSE [None]
  - MYALGIA [None]
  - NAUSEA [None]
  - SINUSITIS [None]
  - SMOOTH MUSCLE ANTIBODY POSITIVE [None]
  - SPLENOMEGALY [None]
  - SUBCUTANEOUS ABSCESS [None]
  - SYSTEMIC LUPUS ERYTHEMATOSUS [None]
  - URINARY TRACT INFECTION BACTERIAL [None]
  - VISUAL ACUITY REDUCED [None]
  - VOCAL CORD CYST [None]
  - WOUND INFECTION STAPHYLOCOCCAL [None]
